FAERS Safety Report 7318744-0 (Version None)
Quarter: 2011Q1

REPORT INFORMATION
  Report Type: 
  Country: None (occurrence: None)
  Receive Date: 20110228
  Receipt Date: 20100420
  Transmission Date: 20110831
  Serious: No
  Sender: FDA-Public Use
  Company Number: A0847366A

PATIENT
  Age: 63 Year
  Sex: Female
  Weight: 77.3 kg

DRUGS (4)
  1. KLONOPIN [Concomitant]
     Dosage: 1.5MG PER DAY
     Route: 048
  2. VERAMYST [Concomitant]
     Dosage: 2PUFF PER DAY
     Route: 045
  3. IMITREX [Suspect]
     Indication: MIGRAINE
     Dosage: 6MG AS REQUIRED
     Route: 058
     Dates: start: 20100101, end: 20100201
  4. VISTARIL [Concomitant]
     Dosage: 25MG AT NIGHT
     Route: 048

REACTIONS (3)
  - INJECTION SITE HAEMATOMA [None]
  - DRUG INEFFECTIVE [None]
  - PRODUCT QUALITY ISSUE [None]
